FAERS Safety Report 4704561-4 (Version None)
Quarter: 2005Q2

REPORT INFORMATION
  Report Type: 
  Country: None (occurrence: None)
  Receive Date: 20050629
  Receipt Date: 20050617
  Transmission Date: 20051028
  Serious: Yes (Hospitalization, Other)
  Sender: FDA-Public Use
  Company Number: 2005084242

PATIENT
  Age: 37 Year
  Sex: Male

DRUGS (18)
  1. SOLU-CORTEF [Suspect]
     Indication: PHARYNX DISCOMFORT
     Dosage: 100 MG (1 D), INTRAVENOUS
     Route: 042
     Dates: start: 20041117, end: 20041120
  2. SOLETON (ZALTOPROFEN) [Suspect]
     Indication: INFLAMMATION
     Dosage: 1 TABLET (3 IN 1 D), ORAL
     Route: 048
     Dates: start: 20041117, end: 20041119
  3. DEXCHLORPHENIRAMINE MALEATE [Concomitant]
  4. MEIACT (CEFDITOREN PIVOXIL) [Concomitant]
  5. LENDORM [Concomitant]
  6. SALICYLAMIDE (SALICYLAMIDE) [Suspect]
     Indication: INFLAMMATION
     Dosage: 3 GRAM (1 GRAM, 3 IN 1 D), ORAL
     Route: 048
     Dates: start: 20041117, end: 20041120
  7. LANSOPRAZOLE [Suspect]
     Indication: HELICOBACTER INFECTION
     Dosage: (2 IN 1 D), ORAL
     Route: 048
  8. CLARITHROMYCIN [Suspect]
     Indication: HELICOBACTER INFECTION
     Dosage: (2 IN 1 D), ORAL
     Route: 048
  9. KENALOG [Concomitant]
  10. FLAVITAN (FLAVINE ADENINE DINUCLEOTIDE) [Concomitant]
  11. FLUMARITAN (FLOMOXEF SODIUM) [Concomitant]
  12. VITAMINS (VITAMINS) [Concomitant]
  13. KN SOL. 3B (GLUCOSE, POTASSIUM CHLORIDE SODIUM CHLORIDE, SODIUM LACTAT [Concomitant]
  14. DASEN (SERRAPEPTASE) [Concomitant]
  15. AMOLIN (AMOXICILLIN TRIHYDRATE) [Concomitant]
  16. DEXCHLORPHENIRAMINE MALEATE [Concomitant]
  17. MEIACT (CEFDITOREN PIVOXIL) [Concomitant]
  18. LENDORM [Concomitant]

REACTIONS (6)
  - HELICOBACTER INFECTION [None]
  - HEPATITIS ACUTE [None]
  - HEPATITIS B SURFACE ANTIGEN NEGATIVE [None]
  - HEPATITIS C ANTIBODY POSITIVE [None]
  - JAUNDICE [None]
  - LIVER DISORDER [None]
